FAERS Safety Report 5525664-0 (Version None)
Quarter: 2007Q4

REPORT INFORMATION
  Report Type: 
  Country: None (occurrence: None)
  Receive Date: 20071126
  Receipt Date: 20071001
  Transmission Date: 20080405
  Serious: Yes (Hospitalization)
  Sender: FDA-Public Use
  Company Number: US-ASTRAZENECA-2007UW17824

PATIENT
  Age: 16924 Day
  Sex: Male
  Weight: 134.1 kg

DRUGS (3)
  1. SEROQUEL [Suspect]
     Indication: DEPRESSION
     Route: 048
     Dates: start: 19971001, end: 20000801
  2. SEROQUEL [Suspect]
     Route: 048
  3. RISPERDAL [Concomitant]
     Route: 048
     Dates: start: 19990101, end: 20010114

REACTIONS (4)
  - NAUSEA [None]
  - RENAL FAILURE [None]
  - TYPE 2 DIABETES MELLITUS [None]
  - WEIGHT INCREASED [None]
